FAERS Safety Report 9458418 (Version 1)
Quarter: 2013Q3

REPORT INFORMATION
  Report Type: Spontaneous
  Country: US (occurrence: None)
  Receive Date: 20130813
  Receipt Date: 20130813
  Transmission Date: 20140515
  Serious: Yes (Life-Threatening)
  Sender: FDA-Public Use
  Company Number: None

PATIENT
  Age: 86 Year
  Sex: Female
  Weight: 57.15 kg

DRUGS (12)
  1. ULTRACET [Suspect]
     Indication: BACK PAIN
     Dosage: 1  QID  ORAL
     Route: 048
     Dates: start: 20121029, end: 20121114
  2. SPIRIVA [Concomitant]
  3. LOVASTATIN [Concomitant]
  4. VITAMIN D [Concomitant]
  5. MULTIVITAMIN THERAPEUTIC MULTIPLE VITAMINS [Concomitant]
  6. OMEGA-3 POLYUNSATURATED FATTY ACIDS [Concomitant]
  7. LANSOPRAZOLE [Concomitant]
  8. DUONEB [Concomitant]
  9. COUMADIN [Concomitant]
  10. VITAMIN C [Concomitant]
  11. DILTIAZEM HYDROCHLORIDE XR [Concomitant]
  12. ADVAIR DISKUS [Concomitant]

REACTIONS (1)
  - Pulmonary haemorrhage [None]
